FAERS Safety Report 20132055 (Version 1)
Quarter: 2021Q4

REPORT INFORMATION
  Report Type: Spontaneous
  Country: US (occurrence: US)
  Receive Date: 20211130
  Receipt Date: 20211130
  Transmission Date: 20220303
  Serious: No
  Sender: FDA-Public Use
  Company Number: US-MYLANLABS-2021M1068377

PATIENT
  Sex: Female

DRUGS (1)
  1. ESTRADIOL TRANSDERMAL SYSTEM [Suspect]
     Active Substance: ESTRADIOL
     Indication: Product used for unknown indication
     Dosage: 0.1 PERCENT, QD
     Route: 062

REACTIONS (5)
  - Skin laceration [Unknown]
  - Blister [Unknown]
  - Scab [Unknown]
  - Hypersensitivity [Unknown]
  - Pruritus [Unknown]
